FAERS Safety Report 5159609-2 (Version None)
Quarter: 2006Q4

REPORT INFORMATION
  Report Type: 
  Country: None (occurrence: None)
  Receive Date: 20061129
  Receipt Date: 20061116
  Transmission Date: 20070319
  Serious: Yes (Other)
  Sender: FDA-Public Use
  Company Number: PHNU2006DE03845

PATIENT
  Age: 81 Year
  Sex: Female

DRUGS (1)
  1. TEGRETOL [Suspect]
     Dosage: 600 MG/DAY
     Route: 048

REACTIONS (6)
  - AGGRESSION [None]
  - AGITATION [None]
  - APATHY [None]
  - CONFUSIONAL STATE [None]
  - MEMORY IMPAIRMENT [None]
  - SPEECH DISORDER [None]
